FAERS Safety Report 18105591 (Version 1)
Quarter: 2020Q3

REPORT INFORMATION
  Report Type: Spontaneous
  Country: IT (occurrence: IT)
  Receive Date: 20200804
  Receipt Date: 20200804
  Transmission Date: 20201103
  Serious: Yes (Other)
  Sender: FDA-Public Use
  Company Number: IT-UCBSA-2020030271

PATIENT
  Age: 77 Year
  Sex: Male

DRUGS (3)
  1. MADOPAR [Suspect]
     Active Substance: BENSERAZIDE HYDROCHLORIDE\LEVODOPA
     Indication: ON AND OFF PHENOMENON
     Dosage: LEVODOPA DOSAGE: 125 (NO UNIT PROVIDED), UNKNOWN
  2. NEUPRO [Suspect]
     Active Substance: ROTIGOTINE
     Indication: ON AND OFF PHENOMENON
     Dosage: UNKNOWN
  3. OPICAPONE [Suspect]
     Active Substance: OPICAPONE
     Indication: ON AND OFF PHENOMENON
     Dosage: UNKNOWN

REACTIONS (9)
  - Delusion [Unknown]
  - Confusional state [Unknown]
  - Tremor [Unknown]
  - Therapeutic response shortened [Unknown]
  - Hallucination [Unknown]
  - Psychotic disorder [Unknown]
  - Gait disturbance [Unknown]
  - Constipation [Unknown]
  - Off label use [Unknown]
